FAERS Safety Report 8895130 (Version 1)
Quarter: 2012Q4

REPORT INFORMATION
  Report Type: 
  Country: US (occurrence: US)
  Receive Date: 20121107
  Receipt Date: 20121107
  Transmission Date: 20130627
  Serious: No
  Sender: FDA-Public Use
  Company Number: US-AMGEN-USASP2011061087

PATIENT
  Age: 53 Year
  Sex: Female

DRUGS (2)
  1. ENBREL [Suspect]
     Indication: PSORIASIS
     Dosage: 50 mg, 2 times/wk
     Dates: start: 20111007
  2. ENBREL [Suspect]
     Dates: start: 201110, end: 201112

REACTIONS (6)
  - Colitis microscopic [Not Recovered/Not Resolved]
  - Productive cough [Recovered/Resolved]
  - Diarrhoea [Not Recovered/Not Resolved]
  - Oral fungal infection [Not Recovered/Not Resolved]
  - Vulvovaginal mycotic infection [Not Recovered/Not Resolved]
  - Drug ineffective [Not Recovered/Not Resolved]
